FAERS Safety Report 10564576 (Version 1)
Quarter: 2014Q4

REPORT INFORMATION
  Report Type: Spontaneous
  Country: US (occurrence: US)
  Receive Date: 20141104
  Receipt Date: 20141104
  Transmission Date: 20150529
  Serious: No
  Sender: FDA-Public Use
  Company Number: US-MALLINCKRODT-T201403708

PATIENT
  Age: 65 Year
  Sex: Female
  Weight: 90.7 kg

DRUGS (4)
  1. FENTANYL TRANSDERMAL SYSTEM [Suspect]
     Active Substance: FENTANYL
     Indication: ARTHRITIS
     Dosage: 75 UG/HR, Q 3 DAYS
     Route: 062
     Dates: start: 20141007
  2. FENTANYL TRANSDERMAL SYSTEM [Suspect]
     Active Substance: FENTANYL
     Indication: INTERVERTEBRAL DISC DEGENERATION
  3. PERCOCET [Concomitant]
     Active Substance: ACETAMINOPHEN\OXYCODONE HYDROCHLORIDE
     Indication: BREAKTHROUGH PAIN
     Dosage: 10/325 MG, PRN
     Route: 048
  4. GRALISE [Concomitant]
     Active Substance: GABAPENTIN
     Indication: NEURALGIA
     Dosage: TITRATION PAK
     Route: 048
     Dates: start: 20141005

REACTIONS (3)
  - Drug ineffective [Recovered/Resolved]
  - Product adhesion issue [Unknown]
  - Wrong technique in drug usage process [Unknown]

NARRATIVE: CASE EVENT DATE: 20141008
